FAERS Safety Report 9321569 (Version 2)
Quarter: 2013Q3

REPORT INFORMATION
  Report Type: Spontaneous
  Country: US (occurrence: US)
  Receive Date: 20130531
  Receipt Date: 20130718
  Transmission Date: 20140515
  Serious: Yes (Other)
  Sender: FDA-Public Use
  Company Number: PHEH2013US011731

PATIENT
  Sex: Female

DRUGS (1)
  1. GILENYA [Suspect]
     Dosage: UNK
     Route: 048
     Dates: end: 2012

REACTIONS (3)
  - Colitis ischaemic [Unknown]
  - Convulsion [Unknown]
  - Hypotension [Unknown]
